FAERS Safety Report 8257393-7 (Version None)
Quarter: 2012Q2

REPORT INFORMATION
  Report Type: 
  Country: None (occurrence: None)
  Receive Date: 20120403
  Receipt Date: 20120326
  Transmission Date: 20120825
  Serious: Yes (Other)
  Sender: FDA-Public Use
  Company Number: JP-PFIZER INC-2012053072

PATIENT
  Age: 59 Year
  Sex: Female

DRUGS (2)
  1. XALATAN [Suspect]
     Dosage: 1 DROP PER DAY
     Route: 047
     Dates: start: 20111214
  2. CARTEOLOL HYDROCHLORIDE [Suspect]
     Indication: GLAUCOMA
     Dosage: 2 DROPS PER DAY
     Route: 047
     Dates: start: 20111214

REACTIONS (3)
  - PURULENCE [None]
  - SCAB [None]
  - EPISTAXIS [None]
